FAERS Safety Report 4764892-9 (Version None)
Quarter: 2005Q3

REPORT INFORMATION
  Report Type: 
  Country: None (occurrence: None)
  Receive Date: 20050906
  Receipt Date: 20050827
  Transmission Date: 20060218
  Serious: Yes (Hospitalization)
  Sender: FDA-Public Use
  Company Number: US_0506119598

PATIENT
  Age: 29 Year
  Sex: Male
  Weight: 65 kg

DRUGS (1)
  1. OLANZAPINE [Suspect]
     Indication: SCHIZOPHRENIA
     Dosage: 15 MG DAY
     Dates: start: 20050517, end: 20050613

REACTIONS (13)
  - ANHEDONIA [None]
  - ASTHENIA [None]
  - CONDITION AGGRAVATED [None]
  - DEPRESSION [None]
  - DISTURBANCE IN ATTENTION [None]
  - DRUG INEFFECTIVE [None]
  - FLAT AFFECT [None]
  - HALLUCINATION, AUDITORY [None]
  - INSOMNIA [None]
  - LACERATION [None]
  - SCHIZOPHRENIA, PARANOID TYPE [None]
  - SELF MUTILATION [None]
  - SUICIDAL IDEATION [None]
